FAERS Safety Report 21282173 (Version 1)
Quarter: 2022Q3

REPORT INFORMATION
  Report Type: Spontaneous
  Country: US (occurrence: US)
  Receive Date: 20220901
  Receipt Date: 20220901
  Transmission Date: 20221027
  Serious: No
  Sender: FDA-Public Use
  Company Number: US-ABBVIE-22K-163-4467305-00

PATIENT
  Age: 11 Year
  Sex: Female

DRUGS (7)
  1. HUMIRA [Suspect]
     Active Substance: ADALIMUMAB
     Indication: Crohn^s disease
     Route: 058
     Dates: start: 202012, end: 202205
  2. HUMIRA [Suspect]
     Active Substance: ADALIMUMAB
     Route: 058
     Dates: start: 202205
  3. TYLENOL [Concomitant]
     Active Substance: ACETAMINOPHEN
     Indication: Pyrexia
  4. IBUPROFEN [Concomitant]
     Active Substance: IBUPROFEN
     Indication: Pyrexia
  5. PREDNISONE [Concomitant]
     Active Substance: PREDNISONE
     Indication: Abdominal pain upper
  6. PREDNISONE [Concomitant]
     Active Substance: PREDNISONE
     Indication: Weight decreased
  7. VITAMIN D [Concomitant]
     Active Substance: VITAMIN D NOS
     Indication: Supplementation therapy

REACTIONS (12)
  - Abdominal pain upper [Recovered/Resolved]
  - Decreased appetite [Recovering/Resolving]
  - Pyrexia [Recovered/Resolved]
  - Cough [Recovered/Resolved]
  - Weight decreased [Recovering/Resolving]
  - Abdominal pain upper [Recovering/Resolving]
  - Red blood cell sedimentation rate increased [Unknown]
  - Faecal calprotectin increased [Unknown]
  - SARS-CoV-2 test positive [Recovered/Resolved]
  - Injection site pain [Recovered/Resolved]
  - Injection site urticaria [Recovering/Resolving]
  - Diarrhoea [Recovering/Resolving]

NARRATIVE: CASE EVENT DATE: 20210701
